FAERS Safety Report 23039489 (Version 10)
Quarter: 2024Q3

REPORT INFORMATION
  Report Type: Report from Study
  Country: US (occurrence: US)
  Receive Date: 20231006
  Receipt Date: 20240903
  Transmission Date: 20241016
  Serious: Yes (Hospitalization)
  Sender: OTSUKA
  Company Number: US-OTSUKA-2023_009110

PATIENT
  Age: 30 Year
  Sex: Male

DRUGS (3)
  1. TOLVAPTAN [Suspect]
     Active Substance: TOLVAPTAN
     Indication: Congenital cystic kidney disease
     Dosage: 60 MG, QD (IN THE MORNING)
     Route: 065
     Dates: start: 20190713
  2. TOLVAPTAN [Suspect]
     Active Substance: TOLVAPTAN
     Indication: Congenital cystic kidney disease
     Dosage: 30 MG, QD (IN THE EVENING)
     Route: 065
     Dates: start: 20190713
  3. OZEMPIC [Suspect]
     Active Substance: SEMAGLUTIDE
     Indication: Product used for unknown indication
     Dosage: UNK
     Route: 065

REACTIONS (9)
  - Pancreatitis [Recovered/Resolved]
  - Deep vein thrombosis [Unknown]
  - Diabetes mellitus [Not Recovered/Not Resolved]
  - Gout [Not Recovered/Not Resolved]
  - Illness [Recovered/Resolved]
  - Illness [Recovered/Resolved]
  - Adverse drug reaction [Recovered/Resolved]
  - Respiratory tract infection viral [Recovered/Resolved]
  - Alanine aminotransferase increased [Not Recovered/Not Resolved]

NARRATIVE: CASE EVENT DATE: 20230405
